FAERS Safety Report 11096130 (Version 1)
Quarter: 2015Q2

REPORT INFORMATION
  Report Type: Spontaneous
  Country: US (occurrence: None)
  Receive Date: 20150506
  Receipt Date: 20150506
  Transmission Date: 20150821
  Serious: No
  Sender: FDA-Public Use
  Company Number: None

PATIENT
  Age: 13 Year
  Sex: Male

DRUGS (2)
  1. DEXTROAMP-AMPHET ER, 45MG, ACTAVIS [Suspect]
     Active Substance: AMPHETAMINE ASPARTATE\AMPHETAMINE SULFATE\DEXTROAMPHETAMINE SACCHARATE\DEXTROAMPHETAMINE SULFATE
     Indication: ATTENTION DEFICIT/HYPERACTIVITY DISORDER
     Dosage: 2 PILLS (15 MG + 30 MG) ONCE DAILY, TAKEN BY MOUTH
     Route: 048
  2. ADDERALL XR GENERIC STRATTERA [Concomitant]

REACTIONS (4)
  - Drug ineffective [None]
  - Psychomotor hyperactivity [None]
  - Product substitution issue [None]
  - Impulse-control disorder [None]
